FAERS Safety Report 7131431-7 (Version None)
Quarter: 2010Q4

REPORT INFORMATION
  Report Type: 
  Country: None (occurrence: None)
  Receive Date: 20101124
  Receipt Date: 20101124
  Transmission Date: 20110411
  Serious: Yes (Death)
  Sender: FDA-Public Use
  Company Number: None

PATIENT
  Age: 63 Year
  Sex: Male
  Weight: 126 kg

DRUGS (1)
  1. PHYTONADIONE [Suspect]
     Indication: ANTICOAGULANT THERAPY
     Dosage: 0.5 MG ONCE IV
     Route: 042
     Dates: start: 20101023, end: 20101023

REACTIONS (4)
  - ANAPHYLACTIC REACTION [None]
  - CARDIO-RESPIRATORY ARREST [None]
  - ELECTROMECHANICAL DISSOCIATION [None]
  - UNRESPONSIVE TO STIMULI [None]
